FAERS Safety Report 6315215-5 (Version None)
Quarter: 2009Q3

REPORT INFORMATION
  Report Type: 
  Country: None (occurrence: None)
  Receive Date: 20090819
  Receipt Date: 20090810
  Transmission Date: 20100115
  Serious: Yes (Other)
  Sender: FDA-Public Use
  Company Number: PHHY2009JP33604

PATIENT
  Age: 81 Year
  Sex: Male

DRUGS (2)
  1. ZOMETA [Suspect]
     Indication: METASTASES TO BONE
     Dosage: 4MG (EVERY FOUR WEEKS)
     Route: 042
     Dates: start: 20090116, end: 20090605
  2. ZOLADEX [Concomitant]
     Route: 042

REACTIONS (4)
  - OSTEOMYELITIS [None]
  - OSTEOSCLEROSIS [None]
  - PURULENT DISCHARGE [None]
  - TOOTHACHE [None]
